FAERS Safety Report 23076002 (Version 3)
Quarter: 2023Q4

REPORT INFORMATION
  Report Type: Report from Study
  Country: FR (occurrence: FR)
  Receive Date: 20231017
  Receipt Date: 20231222
  Transmission Date: 20240109
  Serious: Yes (Other)
  Sender: FDA-Public Use
  Company Number: FR-SA-SAC20230801000116

PATIENT
  Age: 59 Year
  Sex: Female
  Weight: 65 kg

DRUGS (28)
  1. ISATUXIMAB [Suspect]
     Active Substance: ISATUXIMAB
     Indication: Plasma cell myeloma refractory
     Dosage: 660 MG
     Route: 065
     Dates: start: 20221201, end: 20221201
  2. ISATUXIMAB [Suspect]
     Active Substance: ISATUXIMAB
     Dosage: 660 MG
     Route: 065
     Dates: start: 20230126, end: 20230126
  3. ISATUXIMAB [Suspect]
     Active Substance: ISATUXIMAB
     Dosage: 660 MG
     Route: 065
     Dates: start: 20230727, end: 20230727
  4. ISATUXIMAB [Suspect]
     Active Substance: ISATUXIMAB
     Dosage: 660 MG
     Route: 065
     Dates: start: 20230323, end: 20230323
  5. ISATUXIMAB [Suspect]
     Active Substance: ISATUXIMAB
     Dosage: 660 MG
     Dates: start: 20230914, end: 20230914
  6. POMALIDOMIDE [Suspect]
     Active Substance: POMALIDOMIDE
     Indication: Plasma cell myeloma refractory
     Dosage: 3 MG
     Route: 065
     Dates: start: 20221201, end: 20221201
  7. POMALIDOMIDE [Suspect]
     Active Substance: POMALIDOMIDE
     Dosage: 3 MG
     Route: 065
     Dates: start: 20230206, end: 20230206
  8. POMALIDOMIDE [Suspect]
     Active Substance: POMALIDOMIDE
     Dosage: 3 MG
     Route: 065
     Dates: start: 20230327, end: 20230327
  9. POMALIDOMIDE [Suspect]
     Active Substance: POMALIDOMIDE
     Dosage: 3 MG
     Route: 065
     Dates: start: 20230727, end: 20230727
  10. POMALIDOMIDE [Suspect]
     Active Substance: POMALIDOMIDE
     Dosage: 3 MG
     Dates: start: 20230918, end: 20230918
  11. CARFILZOMIB [Suspect]
     Active Substance: CARFILZOMIB
     Indication: Plasma cell myeloma refractory
     Dosage: 34 MG
     Route: 065
     Dates: start: 20221201, end: 20221201
  12. CARFILZOMIB [Suspect]
     Active Substance: CARFILZOMIB
     Dosage: 94 MG
     Route: 065
     Dates: start: 20230202, end: 20230202
  13. CARFILZOMIB [Suspect]
     Active Substance: CARFILZOMIB
     Dosage: 94 MG
     Route: 065
     Dates: start: 20230727, end: 20230727
  14. CARFILZOMIB [Suspect]
     Active Substance: CARFILZOMIB
     Dosage: 34 MG
     Route: 065
     Dates: start: 20230323, end: 20230323
  15. CARFILZOMIB [Suspect]
     Active Substance: CARFILZOMIB
     Dosage: 34 MG
     Dates: start: 20230914, end: 20230914
  16. DEXAMETHASONE [Concomitant]
     Active Substance: DEXAMETHASONE
     Indication: Plasma cell myeloma refractory
     Dosage: 40 MG
     Route: 065
     Dates: start: 20220112, end: 20220112
  17. DEXAMETHASONE [Concomitant]
     Active Substance: DEXAMETHASONE
     Dosage: 40 MG
     Route: 065
     Dates: start: 20230727, end: 20230727
  18. DEXAMETHASONE [Concomitant]
     Active Substance: DEXAMETHASONE
     Dosage: 40 MG
     Route: 065
     Dates: start: 20230202, end: 20230202
  19. DEXAMETHASONE [Concomitant]
     Active Substance: DEXAMETHASONE
     Dosage: 40 MG, QD
     Dates: start: 20230914, end: 20230914
  20. VALACYCLOVIR HYDROCHLORIDE [Concomitant]
     Active Substance: VALACYCLOVIR HYDROCHLORIDE
     Indication: Prophylaxis
     Dosage: 500 MG, QD
     Route: 065
     Dates: start: 20190823
  21. LENOGRASTIM [Concomitant]
     Active Substance: LENOGRASTIM
     Indication: Neutropenia
     Dosage: 3 DF
     Route: 065
     Dates: start: 20221223
  22. LENOGRASTIM [Concomitant]
     Active Substance: LENOGRASTIM
     Dosage: 3 DF
     Route: 065
     Dates: start: 20230119
  23. CALCIUM CARBONATE\CHOLECALCIFEROL [Concomitant]
     Active Substance: CALCIUM CARBONATE\CHOLECALCIFEROL
     Indication: Prophylaxis
     Dosage: 500 MG, BID
     Route: 065
     Dates: start: 20190823
  24. PANTOPRAZOLE [Concomitant]
     Active Substance: PANTOPRAZOLE
     Indication: Prophylaxis
     Dosage: 20 MG, QD
     Route: 065
     Dates: start: 20190823
  25. ASPIRIN DL-LYSINE [Concomitant]
     Active Substance: ASPIRIN DL-LYSINE
     Indication: Prophylaxis
     Dosage: 100 MG, QD
     Route: 065
     Dates: start: 20190823
  26. AMOXICILLIN [Concomitant]
     Active Substance: AMOXICILLIN
     Indication: Prophylaxis
     Dosage: 500 MG, BID
     Route: 065
     Dates: start: 20190823
  27. BACTRIM [Concomitant]
     Active Substance: SULFAMETHOXAZOLE\TRIMETHOPRIM
     Indication: Prophylaxis
     Dosage: 80 MG, TID
     Route: 065
     Dates: start: 20220212
  28. FOLDINE [Concomitant]
     Indication: Prophylaxis
     Dosage: 5 MG
     Dates: start: 20230119

REACTIONS (5)
  - Lymphopenia [Not Recovered/Not Resolved]
  - Lymphopenia [Not Recovered/Not Resolved]
  - Lymphopenia [Not Recovered/Not Resolved]
  - Lymphopenia [Recovered/Resolved]
  - Lymphopenia [Recovered/Resolved]

NARRATIVE: CASE EVENT DATE: 20230207
